FAERS Safety Report 17569973 (Version 2)
Quarter: 2020Q3

REPORT INFORMATION
  Report Type: Report from Study
  Country: MX (occurrence: MX)
  Receive Date: 20200323
  Receipt Date: 20200701
  Transmission Date: 20201102
  Serious: Yes (Death, Other)
  Sender: FDA-Public Use
  Company Number: MX-BRISTOL-MYERS SQUIBB COMPANY-BMS-2020-024613

PATIENT
  Age: 70 Year
  Sex: Male

DRUGS (2)
  1. DASATINIB. [Suspect]
     Active Substance: DASATINIB
     Dosage: 100 MILLIGRAM, QD
     Route: 048
     Dates: start: 202004, end: 20200601
  2. DASATINIB. [Suspect]
     Active Substance: DASATINIB
     Indication: CHRONIC MYELOID LEUKAEMIA
     Dosage: 100 MILLIGRAM, QD
     Route: 048
     Dates: start: 20191231

REACTIONS (3)
  - Intestinal perforation [Recovering/Resolving]
  - Intestinal ulcer [Recovering/Resolving]
  - Gastric varices [Fatal]

NARRATIVE: CASE EVENT DATE: 202002
